FAERS Safety Report 15668324 (Version 1)
Quarter: 2018Q4

REPORT INFORMATION
  Report Type: Report from Study
  Country: BR (occurrence: BR)
  Receive Date: 20181129
  Receipt Date: 20181129
  Transmission Date: 20190205
  Serious: Yes (Other)
  Sender: FDA-Public Use
  Company Number: PHHY2018BR167150

PATIENT
  Sex: Female
  Weight: 105 kg

DRUGS (1)
  1. VITALUX PLUS OMEGA 03 (ALC) [Suspect]
     Active Substance: MINERALS\OMEGA-3 FATTY ACIDS\VITAMINS
     Indication: EYE DISORDER
     Dosage: UNK, QD, AFTER LUNCH
     Route: 048

REACTIONS (4)
  - Visual impairment [Unknown]
  - Body height decreased [Unknown]
  - Overweight [Not Recovered/Not Resolved]
  - Blindness [Unknown]
